FAERS Safety Report 6359489-3 (Version None)
Quarter: 2009Q3

REPORT INFORMATION
  Report Type: 
  Country: None (occurrence: None)
  Receive Date: 20090917
  Receipt Date: 20090911
  Transmission Date: 20100115
  Serious: Yes (Death)
  Sender: FDA-Public Use
  Company Number: JP-AVENTIS-200912549JP

PATIENT
  Age: 68 Year
  Sex: Male

DRUGS (2)
  1. LANTUS [Suspect]
     Dosage: DOSE: 14 UNITS
     Route: 058
     Dates: end: 20090830
  2. METFORMIN HCL [Concomitant]
     Route: 048
     Dates: end: 20090801

REACTIONS (1)
  - HYPOGLYCAEMIA [None]
